FAERS Safety Report 6620959-1 (Version None)
Quarter: 2010Q1

REPORT INFORMATION
  Report Type: 
  Country: None (occurrence: None)
  Receive Date: 20100309
  Receipt Date: 20100226
  Transmission Date: 20100710
  Serious: Yes (Death, Hospitalization)
  Sender: FDA-Public Use
  Company Number: TW-BAXTER-2010BH005379

PATIENT
  Sex: Female

DRUGS (6)
  1. DIANEAL [Suspect]
     Indication: PERITONEAL DIALYSIS
     Route: 033
     Dates: start: 20041001
  2. DIANEAL [Suspect]
     Route: 033
     Dates: start: 20041001
  3. DIANEAL [Suspect]
     Indication: PERITONEAL DIALYSIS
     Route: 033
     Dates: start: 20041001
  4. DIANEAL [Suspect]
     Route: 033
     Dates: start: 20041001
  5. DIANEAL [Suspect]
     Indication: PERITONEAL DIALYSIS
     Route: 033
     Dates: start: 20041001
  6. DIANEAL [Suspect]
     Route: 033
     Dates: start: 20041001

REACTIONS (2)
  - INFLAMMATION [None]
  - PERITONITIS BACTERIAL [None]
